FAERS Safety Report 4286083-0 (Version None)
Quarter: 2004Q1

REPORT INFORMATION
  Report Type: 
  Country: None (occurrence: None)
  Receive Date: 20040120
  Receipt Date: 20021205
  Transmission Date: 20041129
  Serious: Yes (Life-Threatening, Hospitalization)
  Sender: FDA-Public Use
  Company Number: 2002USA00904

PATIENT
  Age: 77 Year
  Sex: Female

DRUGS (6)
  1. PLAVIX [Suspect]
     Indication: CEREBRAL VENOUS THROMBOSIS
     Dosage: 75 MG OD - ORAL
     Route: 048
     Dates: end: 20020101
  2. PLAVIX [Suspect]
     Indication: TRANSIENT ISCHAEMIC ATTACK
     Dosage: 75 MG OD - ORAL
     Route: 048
     Dates: end: 20020101
  3. VITAMIN E [Concomitant]
  4. LEVOTHYROXINE SODIUM [Concomitant]
  5. CALCIUM [Concomitant]
  6. MECLIZINE [Concomitant]

REACTIONS (3)
  - ANAEMIA [None]
  - HEPATITIS [None]
  - LIVER FUNCTION TEST ABNORMAL [None]
